FAERS Safety Report 9901934 (Version 2)
Quarter: 2014Q1

REPORT INFORMATION
  Report Type: Spontaneous
  Country: DE (occurrence: DE)
  Receive Date: 20140217
  Receipt Date: 20140224
  Transmission Date: 20141002
  Serious: Yes (Other)
  Sender: FDA-Public Use
  Company Number: DE-GLAXOSMITHKLINE-D0082743A

PATIENT
  Sex: Male
  Weight: 90 kg

DRUGS (1)
  1. VIANI 50-250 DISKUS [Suspect]
     Indication: CHRONIC OBSTRUCTIVE PULMONARY DISEASE
     Dosage: 300MCG TWICE PER DAY
     Route: 055
     Dates: start: 1998

REACTIONS (2)
  - Pulmonary function test decreased [Recovered/Resolved]
  - Product quality issue [Unknown]
